FAERS Safety Report 6278943-6 (Version None)
Quarter: 2009Q3

REPORT INFORMATION
  Report Type: 
  Country: None (occurrence: None)
  Receive Date: 20090723
  Receipt Date: 20090714
  Transmission Date: 20100115
  Serious: Yes (Hospitalization)
  Sender: FDA-Public Use
  Company Number: DE-JNJFOC-20090705006

PATIENT
  Age: 56 Year
  Sex: Female

DRUGS (1)
  1. RISPERDAL [Suspect]
     Indication: DRUG USE FOR UNKNOWN INDICATION
     Route: 048

REACTIONS (4)
  - DIZZINESS [None]
  - FACE OEDEMA [None]
  - GASTROINTESTINAL DISORDER [None]
  - HYPONATRAEMIA [None]
